FAERS Safety Report 16830944 (Version 1)
Quarter: 2019Q3

REPORT INFORMATION
  Report Type: Spontaneous
  Country: GB (occurrence: GB)
  Receive Date: 20190920
  Receipt Date: 20190920
  Transmission Date: 20191005
  Serious: Yes (Other)
  Sender: FDA-Public Use
  Company Number: GB-TEVA-2019-GB-1109864

PATIENT
  Age: 75 Year
  Sex: Male
  Weight: 77.56 kg

DRUGS (4)
  1. DOXYCYCLINE. [Concomitant]
     Active Substance: DOXYCYCLINE
     Indication: BLEPHARITIS
  2. CIPROFLOXACIN HYDROCHLORIDEOXACIN [Suspect]
     Active Substance: CIPROFLOXACIN
     Indication: PROSTATITIS
     Dosage: 1000 MG
     Route: 048
     Dates: start: 20190624, end: 20190721
  3. TRIMETHOPRIM. [Concomitant]
     Active Substance: TRIMETHOPRIM
     Indication: URINARY TRACT INFECTION
  4. MACROBID [Concomitant]
     Active Substance: NITROFURANTOIN\NITROFURANTOIN MONOHYDRATE
     Indication: URINARY TRACT INFECTION

REACTIONS (3)
  - Tendonitis [Recovering/Resolving]
  - Epicondylitis [Recovering/Resolving]
  - Muscle rupture [Recovering/Resolving]

NARRATIVE: CASE EVENT DATE: 20190701
